FAERS Safety Report 5717120-1 (Version None)
Quarter: 2008Q2

REPORT INFORMATION
  Report Type: 
  Country: None (occurrence: None)
  Receive Date: 20080423
  Receipt Date: 20080414
  Transmission Date: 20081010
  Serious: Yes (Life-Threatening, Other)
  Sender: FDA-Public Use
  Company Number: 2008AP000920

PATIENT
  Age: 77 Year
  Sex: Male

DRUGS (4)
  1. DILTZAC [Suspect]
     Indication: HYPERTENSION
  2. PROPRANOLOL HYDROCHLORIDE [Suspect]
     Indication: HYPERTENSION
  3. TIMOLOL MALEATE [Concomitant]
  4. LATANOPROST [Concomitant]

REACTIONS (11)
  - ATRIOVENTRICULAR BLOCK COMPLETE [None]
  - BLOOD GLUCOSE INCREASED [None]
  - BLOOD PRESSURE DIASTOLIC DECREASED [None]
  - BLOOD SODIUM DECREASED [None]
  - DIZZINESS [None]
  - HYPERKALAEMIA [None]
  - METABOLIC ACIDOSIS [None]
  - OBSTRUCTIVE UROPATHY [None]
  - PRESYNCOPE [None]
  - REFUSAL OF TREATMENT BY PATIENT [None]
  - RENAL TUBULAR ACIDOSIS [None]
